FAERS Safety Report 21256812 (Version 2)
Quarter: 2022Q3

REPORT INFORMATION
  Report Type: Report from Study
  Country: FR (occurrence: FR)
  Receive Date: 20220826
  Receipt Date: 20220927
  Transmission Date: 20221027
  Serious: Yes (Hospitalization, Other)
  Sender: FDA-Public Use
  Company Number: FR-TAKEDA-2022TUS059203

PATIENT
  Age: 70 Year
  Sex: Female
  Weight: 55 kg

DRUGS (13)
  1. ICATIBANT [Suspect]
     Active Substance: ICATIBANT ACETATE
     Indication: Hereditary angioedema
     Dosage: UNK
     Route: 065
  2. ICATIBANT [Suspect]
     Active Substance: ICATIBANT ACETATE
     Indication: Hereditary angioedema
     Dosage: UNK
     Route: 065
  3. LYRICA [Concomitant]
     Active Substance: PREGABALIN
     Dosage: UNK
     Route: 048
     Dates: end: 20201203
  4. LYRICA [Concomitant]
     Active Substance: PREGABALIN
     Dosage: 50 MILLIGRAM, TID
     Route: 065
     Dates: start: 2021
  5. PRAZEPAM [Concomitant]
     Active Substance: PRAZEPAM
     Indication: Depression
     Dosage: UNK
     Route: 065
     Dates: start: 2015, end: 2017
  6. NITROFURANTOIN [Concomitant]
     Active Substance: NITROFURANTOIN
     Indication: Cystitis
     Dosage: 1 INTERNATIONAL UNIT
     Route: 048
     Dates: start: 2015
  7. PROMESTRIENE [Concomitant]
     Active Substance: PROMESTRIENE
     Dosage: UNK
     Route: 065
     Dates: start: 2016, end: 2016
  8. Seropram [Concomitant]
     Indication: Depression
     Dosage: UNK
     Route: 065
     Dates: start: 2016
  9. ESCITALOPRAM [Concomitant]
     Active Substance: ESCITALOPRAM OXALATE
     Indication: Depression
     Dosage: UNK
     Route: 065
     Dates: start: 2016, end: 2017
  10. OMEPRAZOLE [Concomitant]
     Active Substance: OMEPRAZOLE
     Indication: Abdominal pain upper
     Dosage: 20 MILLIGRAM, QD
     Route: 048
     Dates: start: 20200109
  11. AMITRIPTYLINE HYDROCHLORIDE [Concomitant]
     Active Substance: AMITRIPTYLINE HYDROCHLORIDE
     Dosage: 5 DOSAGE FORM
     Route: 048
     Dates: start: 2011
  12. Covid-19 vaccine [Concomitant]
     Indication: COVID-19 immunisation
     Dosage: 2 DOSAGE FORM
     Route: 030
     Dates: start: 2021, end: 2021
  13. VENLAFAXINE [Concomitant]
     Active Substance: VENLAFAXINE HYDROCHLORIDE
     Indication: Anxiety
     Dosage: 37.5 MILLIGRAM, QD
     Route: 065
     Dates: start: 20210721, end: 20210728

REACTIONS (1)
  - Breast cancer [Recovered/Resolved]

NARRATIVE: CASE EVENT DATE: 20210819
